FAERS Safety Report 10077170 (Version 1)
Quarter: 2014Q2

REPORT INFORMATION
  Report Type: Report from Study
  Country: BR (occurrence: BR)
  Receive Date: 20140414
  Receipt Date: 20140414
  Transmission Date: 20141212
  Serious: Yes (Other)
  Sender: FDA-Public Use
  Company Number: PHHY2014BR041408

PATIENT
  Sex: Male
  Weight: 88 kg

DRUGS (5)
  1. GALVUS [Suspect]
     Indication: DIABETES MELLITUS
  2. CITALOPRAM [Suspect]
  3. MEMANTINE [Suspect]
  4. INSULIN HUMALOG [Suspect]
  5. INSULINE [Suspect]

REACTIONS (4)
  - Blood glucose increased [Unknown]
  - Malaise [Unknown]
  - Memory impairment [Unknown]
  - Weight increased [Unknown]
